FAERS Safety Report 17152579 (Version 1)
Quarter: 2019Q4

REPORT INFORMATION
  Report Type: Spontaneous
  Country: US (occurrence: US)
  Receive Date: 20191213
  Receipt Date: 20191213
  Transmission Date: 20200122
  Serious: No
  Sender: FDA-Public Use
  Company Number: US-NOVOPROD-668295

PATIENT
  Age: 58 Year
  Sex: Female

DRUGS (1)
  1. LEVEMIR [Suspect]
     Active Substance: INSULIN DETEMIR
     Indication: TYPE 1 DIABETES MELLITUS
     Dosage: 20 IU, QD
     Route: 058

REACTIONS (4)
  - Pain [Not Recovered/Not Resolved]
  - Defaecation disorder [Recovered/Resolved]
  - Vomiting [Recovered/Resolved]
  - Urethral pain [Not Recovered/Not Resolved]

NARRATIVE: CASE EVENT DATE: 20190610
